FAERS Safety Report 21147255 (Version 1)
Quarter: 2022Q3

REPORT INFORMATION
  Report Type: Spontaneous
  Country: US (occurrence: US)
  Receive Date: 20220729
  Receipt Date: 20220729
  Transmission Date: 20221027
  Serious: Yes (Death, Hospitalization)
  Sender: FDA-Public Use
  Company Number: US-MYLANLABS-2022M1081547

PATIENT
  Age: 58 Year
  Sex: Male

DRUGS (2)
  1. DAPTOMYCIN [Suspect]
     Active Substance: DAPTOMYCIN
     Indication: Streptococcal infection
     Dosage: UNK
     Route: 065
  2. DAPTOMYCIN [Suspect]
     Active Substance: DAPTOMYCIN
     Indication: Staphylococcal infection

REACTIONS (8)
  - Interstitial lung disease [Fatal]
  - Diffuse alveolar damage [Fatal]
  - Respiratory disorder [Fatal]
  - Condition aggravated [Fatal]
  - Acute respiratory failure [Not Recovered/Not Resolved]
  - Leukocytosis [Unknown]
  - Lung infiltration [Not Recovered/Not Resolved]
  - Pleural effusion [Not Recovered/Not Resolved]
